FAERS Safety Report 7315291-7 (Version None)
Quarter: 2011Q1

REPORT INFORMATION
  Report Type: 
  Country: None (occurrence: None)
  Receive Date: 20110225
  Receipt Date: 20110211
  Transmission Date: 20110831
  Serious: Yes (Other)
  Sender: FDA-Public Use
  Company Number: PHHY2011TW11195

PATIENT
  Sex: Female

DRUGS (1)
  1. EXJADE [Suspect]
     Indication: THALASSAEMIA
     Dosage: 1000 MG
     Route: 048

REACTIONS (3)
  - BACK PAIN [None]
  - OSTEONECROSIS [None]
  - HYPERSENSITIVITY [None]
